FAERS Safety Report 24017504 (Version 3)
Quarter: 2024Q3

REPORT INFORMATION
  Report Type: Spontaneous
  Country: US (occurrence: US)
  Receive Date: 20240627
  Receipt Date: 20240808
  Transmission Date: 20241016
  Serious: No
  Sender: ROCHE
  Company Number: None

PATIENT
  Age: 59 Year
  Sex: Male

DRUGS (1)
  1. ACTEMRA [Suspect]
     Active Substance: TOCILIZUMAB
     Indication: Giant cell arteritis
     Dosage: IN THE THIGH OR THE ABDOMEN, ROTATES SITES
     Route: 058
     Dates: start: 2023

REACTIONS (7)
  - Contusion [Not Recovered/Not Resolved]
  - Product preparation error [Unknown]
  - Wrong technique in product usage process [Unknown]
  - Exposure via skin contact [Unknown]
  - Device malfunction [Unknown]
  - Device malfunction [Unknown]
  - Device malfunction [Unknown]

NARRATIVE: CASE EVENT DATE: 20240515
